FAERS Safety Report 10475076 (Version 1)
Quarter: 2014Q3

REPORT INFORMATION
  Report Type: Spontaneous
  Country: US (occurrence: None)
  Receive Date: 20140924
  Receipt Date: 20140924
  Transmission Date: 20150326
  Serious: Yes (Other)
  Sender: FDA-Public Use
  Company Number: None

PATIENT
  Age: 55 Year
  Sex: Female
  Weight: 56.7 kg

DRUGS (1)
  1. PRIVIGEN [Suspect]
     Active Substance: HUMAN IMMUNOGLOBULIN G
     Indication: MYASTHENIA GRAVIS
     Dosage: 20 GHS, MONTHLY, IV
     Route: 042
     Dates: start: 20140908

REACTIONS (3)
  - Burning sensation [None]
  - Swelling [None]
  - Anaphylactic reaction [None]

NARRATIVE: CASE EVENT DATE: 20140908
